FAERS Safety Report 8796212 (Version 2)
Quarter: 2012Q4

REPORT INFORMATION
  Report Type: 
  Country: FR (occurrence: FR)
  Receive Date: 20120920
  Receipt Date: 20121127
  Transmission Date: 20130627
  Serious: Yes (Hospitalization)
  Sender: FDA-Public Use
  Company Number: FR-PFIZER INC-2012231265

PATIENT
  Age: 76 Year
  Sex: Male

DRUGS (9)
  1. CORDARONE [Suspect]
     Indication: ATRIAL FIBRILLATION
     Dosage: 200 mg, daily
     Route: 048
  2. ALDACTONE [Suspect]
     Indication: DRUG USE FOR UNKNOWN INDICATION
     Dosage: 25 mg, UNK
     Route: 048
     Dates: end: 20120618
  3. LASILIX [Suspect]
     Indication: INSUFFICIENCY CARDIAC
     Dosage: 500 mg, Daily
     Route: 048
     Dates: end: 20120612
  4. HEMIGOXINE NATIVELLE [Suspect]
     Indication: ATRIAL FIBRILLATION
     Dosage: 0.125 mg, daily
     Route: 048
     Dates: start: 201102, end: 20120613
  5. PREVISCAN [Concomitant]
     Dosage: UNK
  6. LEVOTHYROX [Concomitant]
     Dosage: UNK
  7. CRESTOR [Concomitant]
     Dosage: UNK
  8. DIFFU K [Concomitant]
     Dosage: UNK
  9. EUPANTOL [Concomitant]
     Dosage: UNK

REACTIONS (4)
  - Cardioactive drug level increased [Recovered/Resolved]
  - Cardiac failure [Recovered/Resolved]
  - Renal failure acute [Recovered/Resolved]
  - International normalised ratio increased [Recovered/Resolved]
